FAERS Safety Report 9568650 (Version 2)
Quarter: 2013Q3

REPORT INFORMATION
  Report Type: Spontaneous
  Country: US (occurrence: US)
  Receive Date: 20130930
  Receipt Date: 20130930
  Transmission Date: 20140515
  Serious: No
  Sender: FDA-Public Use
  Company Number: US-AMGEN-USASP2013057859

PATIENT
  Age: 60 Year
  Sex: Male
  Weight: 98.87 kg

DRUGS (5)
  1. ENBREL [Suspect]
     Indication: PSORIASIS
     Dosage: 50 MG, QWK
     Route: 058
     Dates: start: 20130611, end: 20130711
  2. ZYRTEC [Concomitant]
     Dosage: 5 MG, UNK
  3. IBUPROFEN                          /00109205/ [Concomitant]
     Dosage: 200 MG, UNK
  4. MULTIVITAMINS, PLAIN [Concomitant]
     Dosage: UNK
  5. METHOTREXATE [Concomitant]
     Dosage: UNK

REACTIONS (2)
  - Therapeutic response decreased [Not Recovered/Not Resolved]
  - Psoriasis [Unknown]
